FAERS Safety Report 6346546-0 (Version None)
Quarter: 2009Q3

REPORT INFORMATION
  Report Type: 
  Country: None (occurrence: None)
  Receive Date: 20090909
  Receipt Date: 20090908
  Transmission Date: 20100115
  Serious: Yes (Death, Hospitalization)
  Sender: FDA-Public Use
  Company Number: DE-RB-019910-09

PATIENT
  Age: 28 Day
  Sex: Female
  Weight: 0.74 kg

DRUGS (1)
  1. SUBUTEX [Suspect]
     Indication: DRUG USE FOR UNKNOWN INDICATION
     Dosage: DOSING INFORMATION UNKNOWN.
     Route: 064

REACTIONS (7)
  - AMNIOTIC CAVITY INFECTION [None]
  - DRUG EXPOSURE DURING PREGNANCY [None]
  - INTESTINAL INFARCTION [None]
  - PATERNAL DRUGS AFFECTING FOETUS [None]
  - PREMATURE BABY [None]
  - STREPTOCOCCAL INFECTION [None]
  - SUDDEN DEATH [None]
